FAERS Safety Report 6163011-4 (Version None)
Quarter: 2009Q2

REPORT INFORMATION
  Report Type: 
  Country: None (occurrence: None)
  Receive Date: 20090420
  Receipt Date: 20090408
  Transmission Date: 20091009
  Serious: Yes (Death, Hospitalization, Other)
  Sender: FDA-Public Use
  Company Number: 2009AL002044

PATIENT
  Sex: Male

DRUGS (1)
  1. DIGOXIN [Suspect]
     Dosage: PO
     Route: 048

REACTIONS (15)
  - ANHEDONIA [None]
  - ANXIETY [None]
  - ARRHYTHMIA [None]
  - DEFORMITY [None]
  - DIZZINESS [None]
  - DYSPEPSIA [None]
  - ECONOMIC PROBLEM [None]
  - FAMILY STRESS [None]
  - GENERAL PHYSICAL CONDITION ABNORMAL [None]
  - INJURY [None]
  - NAUSEA [None]
  - PAIN [None]
  - SUDDEN DEATH [None]
  - THERAPEUTIC AGENT TOXICITY [None]
  - WEIGHT DECREASED [None]
